FAERS Safety Report 9094580 (Version 2)
Quarter: 2013Q1

REPORT INFORMATION
  Report Type: Spontaneous
  Country: US (occurrence: US)
  Receive Date: 20130220
  Receipt Date: 20130326
  Transmission Date: 20140127
  Serious: Yes (Other)
  Sender: FDA-Public Use
  Company Number: US-AMGEN-USASP2013010392

PATIENT
  Age: 60 Year
  Sex: Female
  Weight: 53.97 kg

DRUGS (7)
  1. ENBREL [Suspect]
     Indication: RHEUMATOID ARTHRITIS
     Dosage: 50 MG, QWK
     Route: 058
     Dates: start: 20100101
  2. TUMS E-X [Concomitant]
     Dosage: 750 UNK, BID
     Route: 048
  3. VITAMIN D /00107901/ [Concomitant]
     Dosage: 1000 UNIT, QD
     Route: 048
  4. PREDNISONE [Concomitant]
     Indication: RHEUMATOID ARTHRITIS
     Dosage: 5 MG HALF DAILY,
     Route: 048
  5. EXCEDRIN EXTRA STRENGTH [Concomitant]
     Indication: HEADACHE
     Dosage: UNK UNK, PRN
     Route: 048
  6. MULTIVITAMINS, PLAIN [Concomitant]
     Dosage: UNK UNK, QD
  7. ORENCIA [Concomitant]
     Dosage: UNK

REACTIONS (8)
  - Foot operation [Recovered/Resolved]
  - Sinus headache [Not Recovered/Not Resolved]
  - Device failure [Recovered/Resolved]
  - Pain [Unknown]
  - Injection site pain [Not Recovered/Not Resolved]
  - Injection site reaction [Unknown]
  - Injection site erythema [Not Recovered/Not Resolved]
  - Injection site swelling [Not Recovered/Not Resolved]
